FAERS Safety Report 13205108 (Version 2)
Quarter: 2017Q3

REPORT INFORMATION
  Report Type: Spontaneous
  Country: US (occurrence: US)
  Receive Date: 20170209
  Receipt Date: 20170802
  Transmission Date: 20171127
  Serious: No
  Sender: FDA-Public Use
  Company Number: US-BRISTOL-MYERS SQUIBB COMPANY-BMS-2017-009022

PATIENT
  Age: 54 Year
  Sex: Female
  Weight: 53.61 kg

DRUGS (1)
  1. ORENCIA [Suspect]
     Active Substance: ABATACEPT
     Indication: RHEUMATOID ARTHRITIS
     Dosage: 125 MG/ML, QWK
     Route: 058
     Dates: start: 2016

REACTIONS (3)
  - Headache [Unknown]
  - Flatulence [Unknown]
  - Drug administration error [Unknown]

NARRATIVE: CASE EVENT DATE: 20170131
